FAERS Safety Report 17411922 (Version 1)
Quarter: 2020Q1

REPORT INFORMATION
  Report Type: Spontaneous
  Country: US (occurrence: US)
  Receive Date: 20200213
  Receipt Date: 20200213
  Transmission Date: 20200409
  Serious: No
  Sender: FDA-Public Use
  Company Number: US-PRINSTON PHARMACEUTICAL INC.-2019PRN00750

PATIENT
  Sex: Female
  Weight: 81.63 kg

DRUGS (2)
  1. VALSARTAN AND HYDROCHLOROTHIAZIDE [Suspect]
     Active Substance: HYDROCHLOROTHIAZIDE\VALSARTAN
     Indication: BLOOD PRESSURE ABNORMAL
     Dosage: 1 DOSAGE UNITS, 1X/DAY IN THE MORNING
     Route: 048
  2. NEXIUM [Concomitant]
     Active Substance: ESOMEPRAZOLE MAGNESIUM
     Indication: CHRONIC GASTRITIS
     Dosage: UNK

REACTIONS (3)
  - Peripheral swelling [Recovering/Resolving]
  - Drug ineffective [Unknown]
  - Fluid retention [Recovering/Resolving]

NARRATIVE: CASE EVENT DATE: 2019
